FAERS Safety Report 8702035 (Version 4)
Quarter: 2013Q2

REPORT INFORMATION
  Report Type: Report from Study
  Country: GB (occurrence: GB)
  Receive Date: 20120803
  Receipt Date: 20130506
  Transmission Date: 20140414
  Serious: Yes (Hospitalization)
  Sender: FDA-Public Use
  Company Number: GB-ASTELLAS-2012US006075

PATIENT
  Age: 76 Year
  Sex: Male
  Weight: 74 kg

DRUGS (16)
  1. OSI-906 [Suspect]
     Indication: NON-SMALL CELL LUNG CANCER
     Dosage: 150 MG, BID
     Route: 048
     Dates: start: 20120515, end: 20120709
  2. OSI-906 [Suspect]
     Dosage: 150 MG, BID
     Route: 048
     Dates: start: 20120710
  3. ERLOTINIB [Suspect]
     Indication: NON-SMALL CELL LUNG CANCER
     Dosage: 150 MG, UID/QD
     Route: 048
     Dates: start: 20120515
  4. AVEENO [Concomitant]
     Indication: RASH
     Dosage: UNK
     Route: 065
     Dates: start: 20120501
  5. CLINDAMYCIN [Concomitant]
     Indication: RASH
     Dosage: 1 %, UNKNOWN/D
     Route: 065
     Dates: start: 20120501
  6. LOPERAMIDE [Concomitant]
     Indication: DIARRHOEA
     Dosage: UNK
     Route: 065
     Dates: start: 20120501
  7. DIPROBASE                          /01132701/ [Concomitant]
     Indication: RASH
     Dosage: UNK
     Route: 065
     Dates: start: 20120501
  8. AMLODIPINE [Concomitant]
     Indication: HYPERTENSION
     Dosage: UNK
     Route: 065
  9. SIMVASTATIN [Concomitant]
     Indication: HYPERCHOLESTEROLAEMIA
     Dosage: UNK
     Route: 065
  10. SPIRIVA [Concomitant]
     Indication: BRONCHITIS
     Dosage: UNK
     Route: 065
  11. METOCLOPRAMIDE [Concomitant]
     Indication: PROPHYLAXIS OF NAUSEA AND VOMITING
     Dosage: UNK
     Route: 065
     Dates: start: 20120423, end: 20120717
  12. CETIRIZINE [Concomitant]
     Indication: RASH PRURITIC
     Dosage: UNK
     Route: 065
     Dates: start: 20120626
  13. CYCLIZINE [Concomitant]
     Indication: NAUSEA
     Dosage: UNK
     Route: 065
     Dates: start: 20120718
  14. DOXYCYCLINE [Concomitant]
     Indication: LOWER RESPIRATORY TRACT INFECTION
     Dosage: UNK
     Route: 065
     Dates: start: 20120503, end: 20120510
  15. DOXYCYCLINE [Concomitant]
     Indication: RASH
     Dosage: UNK
     Route: 065
     Dates: start: 20120710, end: 20120714
  16. DOXYCYCLINE [Concomitant]
     Indication: RASH

REACTIONS (3)
  - Tremor [Recovered/Resolved]
  - Dysphagia [Recovering/Resolving]
  - Hyperglycaemia [Recovered/Resolved]
